FAERS Safety Report 9840026 (Version 3)
Quarter: 2014Q1

REPORT INFORMATION
  Report Type: Report from Study
  Country: GR (occurrence: GR)
  Receive Date: 20140124
  Receipt Date: 20140319
  Transmission Date: 20141002
  Serious: Yes (Hospitalization)
  Sender: FDA-Public Use
  Company Number: GR-ROCHE-1330732

PATIENT
  Age: 74 Year
  Sex: Female
  Weight: 105 kg

DRUGS (1)
  1. ROACTEMRA [Suspect]
     Indication: RHEUMATOID ARTHRITIS
     Route: 042
     Dates: start: 201311

REACTIONS (11)
  - Renal colic [Unknown]
  - Urinary tract infection [Unknown]
  - Pain [Unknown]
  - Movement disorder [Unknown]
  - Nasopharyngitis [Unknown]
  - Pyrexia [Unknown]
  - Gastrointestinal pain [Unknown]
  - Diarrhoea [Unknown]
  - Constipation [Unknown]
  - Renal disorder [Unknown]
  - Blood urine present [Not Recovered/Not Resolved]
